FAERS Safety Report 15141077 (Version 1)
Quarter: 2018Q3

REPORT INFORMATION
  Report Type: Spontaneous
  Country: US (occurrence: US)
  Receive Date: 20180618
  Receipt Date: 20180618
  Transmission Date: 20181010
  Serious: No
  Sender: FDA-Public Use
  Company Number: None

PATIENT
  Age: 73 Year
  Sex: Female
  Weight: 63.5 kg

DRUGS (1)
  1. AVASTIN [Suspect]
     Active Substance: BEVACIZUMAB
     Indication: MACULAR DEGENERATION
     Dosage: EVERY 7 WEEKS
     Dates: start: 201708

REACTIONS (4)
  - Product contamination chemical [None]
  - Vitreous floaters [None]
  - Foreign body in eye [None]
  - Poor quality drug administered [None]

NARRATIVE: CASE EVENT DATE: 20180516
